FAERS Safety Report 9034504 (Version 1)
Quarter: 2013Q1

REPORT INFORMATION
  Report Type: Spontaneous
  Country: US (occurrence: None)
  Receive Date: 20130116
  Receipt Date: 20130116
  Transmission Date: 20140127
  Serious: Yes (Life-Threatening, Hospitalization)
  Sender: FDA-Public Use
  Company Number: None

PATIENT
  Sex: Female
  Weight: 43.09 kg

DRUGS (1)
  1. HEPARIN [Suspect]
     Dosage: AFTER EACH MED ALWAYS ?
     Dates: start: 2003, end: 2010

REACTIONS (12)
  - Serratia infection [None]
  - Thrombosis in device [None]
  - Clostridium test positive [None]
  - Pulmonary mass [None]
  - Convulsion [None]
  - Pain in extremity [None]
  - Contusion [None]
  - Speech disorder [None]
  - Sepsis [None]
  - Dyspnoea [None]
  - Fatigue [None]
  - Enterococcal infection [None]
